FAERS Safety Report 9859464 (Version 1)
Quarter: 2014Q1

REPORT INFORMATION
  Report Type: Report from Study
  Country: US (occurrence: US)
  Receive Date: 20140131
  Receipt Date: 20140131
  Transmission Date: 20141002
  Serious: Yes (Hospitalization, Other)
  Sender: FDA-Public Use
  Company Number: US-ABBVIE-14P-163-1193437-00

PATIENT
  Age: 57 Year
  Sex: Female
  Weight: 54.48 kg

DRUGS (9)
  1. HUMIRA [Suspect]
     Indication: RHEUMATOID ARTHRITIS
     Dates: start: 200803
  2. CRESTOR [Concomitant]
     Indication: BLOOD CHOLESTEROL INCREASED
     Dates: start: 2013
  3. PLAQUENIL [Concomitant]
     Indication: RHEUMATOID ARTHRITIS
  4. METHOTREXATE [Concomitant]
     Indication: RHEUMATOID ARTHRITIS
  5. FOLIC ACID [Concomitant]
     Indication: ANAEMIA
  6. FERROUS GLUCONATE [Concomitant]
     Indication: ANAEMIA
  7. CALCIUM WITH D3 [Concomitant]
     Indication: VITAMIN SUPPLEMENTATION
  8. CALCIUM WITH D3 [Concomitant]
     Indication: MINERAL SUPPLEMENTATION
  9. VITAMIN B12 [Concomitant]
     Indication: VITAMIN SUPPLEMENTATION

REACTIONS (14)
  - Sensory disturbance [Recovered/Resolved]
  - Sensation of pressure [Recovered/Resolved]
  - Chest discomfort [Recovered/Resolved]
  - Troponin increased [Unknown]
  - Myocardial infarction [Recovering/Resolving]
  - Coronary artery occlusion [Recovered/Resolved]
  - Coronary artery occlusion [Recovering/Resolving]
  - Chest pain [Recovered/Resolved]
  - Back pain [Not Recovered/Not Resolved]
  - Procedural pain [Recovered/Resolved]
  - Arteriosclerosis [Unknown]
  - Gait disturbance [Recovering/Resolving]
  - Cardiac stress test abnormal [Unknown]
  - Chest pain [Not Recovered/Not Resolved]
